FAERS Safety Report 11331551 (Version 2)
Quarter: 2015Q3

REPORT INFORMATION
  Report Type: Spontaneous
  Country: US (occurrence: US)
  Receive Date: 20150803
  Receipt Date: 20150922
  Transmission Date: 20151125
  Serious: No
  Sender: FDA-Public Use
  Company Number: US-PFIZER INC-2015255673

PATIENT
  Age: 69 Year
  Sex: Male
  Weight: 86 kg

DRUGS (2)
  1. XELJANZ [Suspect]
     Active Substance: TOFACITINIB CITRATE
     Indication: RHEUMATOID ARTHRITIS
     Dosage: 5 MG, 2X/DAY
     Route: 048
     Dates: start: 20150707, end: 20150718
  2. TOLMETIN [Suspect]
     Active Substance: TOLMETIN
     Indication: RHEUMATOID ARTHRITIS
     Dosage: 3800 MG, DAILY

REACTIONS (4)
  - Overdose [Unknown]
  - Fatigue [Recovered/Resolved]
  - Headache [Recovered/Resolved]
  - Psychomotor hyperactivity [Recovering/Resolving]

NARRATIVE: CASE EVENT DATE: 20150709
